FAERS Safety Report 7576560-9 (Version None)
Quarter: 2011Q2

REPORT INFORMATION
  Report Type: 
  Country: None (occurrence: None)
  Receive Date: 20110624
  Receipt Date: 20110624
  Transmission Date: 20111010
  Serious: Yes (Other)
  Sender: FDA-Public Use
  Company Number: None

PATIENT
  Sex: Male
  Weight: 81.1939 kg

DRUGS (1)
  1. SUTENT [Suspect]
     Indication: MULTIPLE MYELOMA
     Dosage: 50MG DAILY PO
     Route: 048
     Dates: start: 20110516, end: 20110622

REACTIONS (3)
  - DIZZINESS [None]
  - SYNCOPE [None]
  - INJURY [None]
